FAERS Safety Report 12880370 (Version 3)
Quarter: 2016Q4

REPORT INFORMATION
  Report Type: Spontaneous
  Country: JP (occurrence: JP)
  Receive Date: 20161025
  Receipt Date: 20161123
  Transmission Date: 20170207
  Serious: Yes (Death, Other)
  Sender: FDA-Public Use
  Company Number: JP-ELI_LILLY_AND_COMPANY-JP201610007054

PATIENT
  Age: 56 Year
  Sex: Male
  Weight: 75 kg

DRUGS (9)
  1. URSODEOXYCHOLIC ACID [Concomitant]
     Active Substance: URSODIOL
     Indication: PROPHYLAXIS
     Dosage: 300 MG, QD
     Route: 048
     Dates: start: 20160125
  2. ATELEC [Concomitant]
     Active Substance: CILNIDIPINE
     Indication: HYPERTENSION
     Dosage: 10 MG, QD
     Route: 048
     Dates: start: 20160923
  3. BAKTAR [Concomitant]
     Active Substance: SULFAMETHOXAZOLE\TRIMETHOPRIM
     Indication: PROPHYLAXIS
     Dosage: UNK
     Route: 048
     Dates: start: 20161006
  4. DOCETAXEL. [Suspect]
     Active Substance: DOCETAXEL
     Indication: LUNG ADENOCARCINOMA STAGE IV
     Dosage: 60 MG/M2, OTHER
     Route: 042
     Dates: start: 20161011, end: 20161011
  5. DEXART [Concomitant]
     Active Substance: DEXAMETHASONE SODIUM PHOSPHATE
     Indication: METASTASES TO MENINGES
     Dosage: 6.6 MG, QD
     Route: 042
     Dates: start: 20160922
  6. GLYCEOL                            /00744501/ [Concomitant]
     Active Substance: GLYCERIN
     Indication: METASTASES TO MENINGES
     Dosage: 200 ML, BID
     Route: 042
     Dates: start: 20160922
  7. PROMAC                             /01312301/ [Concomitant]
     Active Substance: POLAPREZINC
     Indication: PROPHYLAXIS
     Dosage: 150 MG, QD
     Route: 048
  8. CYRAMZA [Suspect]
     Active Substance: RAMUCIRUMAB
     Indication: LUNG ADENOCARCINOMA STAGE IV
     Dosage: 10 MG/KG, OTHER
     Route: 042
     Dates: start: 20161011, end: 20161011
  9. NEXIUM [Concomitant]
     Active Substance: ESOMEPRAZOLE MAGNESIUM
     Indication: PROPHYLAXIS
     Dosage: 20 MG, QD
     Route: 048

REACTIONS (4)
  - Platelet count decreased [Unknown]
  - Malignant neoplasm progression [Fatal]
  - Subarachnoid haemorrhage [Fatal]
  - Neutrophil count decreased [Unknown]

NARRATIVE: CASE EVENT DATE: 20161016
